FAERS Safety Report 8239321-3 (Version None)
Quarter: 2012Q1

REPORT INFORMATION
  Report Type: 
  Country: None (occurrence: None)
  Receive Date: 20120326
  Receipt Date: 20120314
  Transmission Date: 20120608
  Serious: No
  Sender: FDA-Public Use
  Company Number: CM12-0012

PATIENT
  Age: 77 Year
  Sex: Male
  Weight: 88.4514 kg

DRUGS (12)
  1. EPINEPHRINE [Suspect]
     Indication: EYE OPERATION
     Dosage: 0.2ML IN A 500ML BALANCED SALINE SOLUTION (BSS AND CEFUROXIME) ONE TIME, INTRAOCULAR
     Route: 031
     Dates: start: 20111221, end: 20111221
  2. VALIUM [Concomitant]
  3. BSS [Concomitant]
  4. MYDRIACYL [Concomitant]
  5. PHENYLEPHRINE HCL [Concomitant]
  6. CYCLOMYDRIL [Concomitant]
  7. BETADINE [Concomitant]
  8. TETRAVISC [Concomitant]
  9. CEFUROXIME [Concomitant]
  10. PROPARACAINE HCL [Concomitant]
  11. VIGAMOX [Concomitant]
  12. OCUCOAT [Concomitant]

REACTIONS (2)
  - ENDOPHTHALMITIS [None]
  - STREPTOCOCCAL INFECTION [None]
